FAERS Safety Report 9193122 (Version 1)
Quarter: 2013Q1

REPORT INFORMATION
  Report Type: Spontaneous
  Country: US (occurrence: US)
  Receive Date: 20130327
  Receipt Date: 20130327
  Transmission Date: 20140127
  Serious: No
  Sender: FDA-Public Use
  Company Number: US-VERTEX PHARMACEUTICALS INC.-2013-004093

PATIENT
  Age: 45 Year
  Sex: Male
  Weight: 101 kg

DRUGS (3)
  1. INCIVEK [Suspect]
     Indication: HEPATITIS C
     Dosage: 750 MG, TID
     Route: 048
     Dates: start: 20120315, end: 20130322
  2. RIBAVIRIN [Suspect]
     Indication: HEPATITIS C
     Dosage: 1 DF, BID
     Dates: start: 20130315, end: 20130322
  3. PEGINTRON [Suspect]
     Indication: HEPATITIS C
     Dosage: 0.5 ML, QW
     Route: 058
     Dates: start: 20130315, end: 20130322

REACTIONS (3)
  - Decreased appetite [Not Recovered/Not Resolved]
  - Malaise [Unknown]
  - Rash pruritic [Not Recovered/Not Resolved]
